FAERS Safety Report 7972782-3 (Version None)
Quarter: 2011Q4

REPORT INFORMATION
  Report Type: 
  Country: None (occurrence: None)
  Receive Date: 20111213
  Receipt Date: 20111209
  Transmission Date: 20120403
  Serious: Yes (Other)
  Sender: FDA-Public Use
  Company Number: US-PFIZER INC-2011188688

PATIENT
  Sex: Female
  Weight: 52.2 kg

DRUGS (2)
  1. PREMPRO [Suspect]
     Indication: HORMONE THERAPY
     Dosage: 0.625/2.5 MG, 1X/DAY
     Route: 048
  2. CALCIUM [Concomitant]
     Dosage: UNK

REACTIONS (6)
  - SKIN WRINKLING [None]
  - DRY SKIN [None]
  - MYOCARDIAL INFARCTION [None]
  - EMOTIONAL DISORDER [None]
  - ASTHENIA [None]
  - DECREASED INTEREST [None]
